FAERS Safety Report 12096777 (Version 1)
Quarter: 2016Q1

REPORT INFORMATION
  Report Type: Other
  Country: US (occurrence: US)
  Receive Date: 20160220
  Receipt Date: 20160220
  Transmission Date: 20160526
  Serious: Yes (Hospitalization)
  Sender: FDA-Public Use
  Company Number: US-ACORDA-ACO_108898_2015

PATIENT
  Age: 35 Year
  Sex: Female
  Weight: 56.24 kg

DRUGS (3)
  1. OXYBUTYNIN CHLORIDE. [Suspect]
     Active Substance: OXYBUTYNIN CHLORIDE
     Indication: HYPERTONIC BLADDER
  2. AMPYRA [Suspect]
     Active Substance: DALFAMPRIDINE
     Indication: MULTIPLE SCLEROSIS
     Dosage: 10 MG, QD
     Route: 048
     Dates: end: 201408
  3. AMPYRA [Suspect]
     Active Substance: DALFAMPRIDINE
     Indication: GAIT DISTURBANCE
     Dosage: 10 MG, QD
     Route: 048
     Dates: start: 201502

REACTIONS (11)
  - Urinary tract infection [Recovered/Resolved]
  - Confusional state [Recovering/Resolving]
  - Therapy cessation [Recovered/Resolved]
  - Inflammation [Unknown]
  - Multiple sclerosis [Unknown]
  - Tremor [Unknown]
  - Inappropriate schedule of drug administration [Unknown]
  - Expired product administered [Recovered/Resolved]
  - Drug effect decreased [Unknown]
  - Muscular weakness [Unknown]
  - Prescribed underdose [Unknown]

NARRATIVE: CASE EVENT DATE: 201408
